FAERS Safety Report 6505625-5 (Version None)
Quarter: 2009Q4

REPORT INFORMATION
  Report Type: 
  Country: None (occurrence: None)
  Receive Date: 20091218
  Receipt Date: 20091214
  Transmission Date: 20100525
  Serious: Yes (Hospitalization)
  Sender: FDA-Public Use
  Company Number: US-WYE-H12620209

PATIENT
  Age: 47 Year
  Sex: Female

DRUGS (1)
  1. TORISEL [Suspect]
     Indication: ENDOMETRIAL CANCER
     Route: 042
     Dates: start: 20090326, end: 20091105

REACTIONS (4)
  - CORYNEBACTERIUM INFECTION [None]
  - SKIN LESION [None]
  - ULCER [None]
  - WOUND INFECTION STAPHYLOCOCCAL [None]
